FAERS Safety Report 16087839 (Version 1)
Quarter: 2019Q1

REPORT INFORMATION
  Report Type: Report from Study
  Country: IT (occurrence: IT)
  Receive Date: 20190319
  Receipt Date: 20190319
  Transmission Date: 20190418
  Serious: Yes (Hospitalization)
  Sender: FDA-Public Use
  Company Number: IT-ACCORD-113958

PATIENT
  Age: 19 Year
  Sex: Female

DRUGS (5)
  1. MOMENDOL [Suspect]
     Active Substance: NAPROXEN SODIUM
     Dosage: STRENGTH:220MG
     Route: 048
     Dates: start: 20181024, end: 20181024
  2. TACHIPIRINA [Suspect]
     Active Substance: ACETAMINOPHEN
     Route: 048
     Dates: start: 20181024, end: 20181024
  3. XANAX [Suspect]
     Active Substance: ALPRAZOLAM
     Route: 048
     Dates: start: 20181024, end: 20181024
  4. EUTIROX [Suspect]
     Active Substance: LEVOTHYROXINE SODIUM
     Dosage: STRENGTH:50 MICROGRAMS
     Route: 048
     Dates: start: 20181024, end: 20181024
  5. QUETIAPINE. [Suspect]
     Active Substance: QUETIAPINE
     Route: 048
     Dates: start: 20181024, end: 20181024

REACTIONS (8)
  - Drug abuse [Unknown]
  - Electrocardiogram QT prolonged [Recovered/Resolved]
  - Nausea [Recovered/Resolved]
  - Tachycardia [Recovered/Resolved]
  - Abdominal pain upper [Recovered/Resolved]
  - Sopor [Recovered/Resolved]
  - Bundle branch block right [Recovered/Resolved]
  - Intentional overdose [Unknown]

NARRATIVE: CASE EVENT DATE: 20181024
